FAERS Safety Report 7102864-X (Version None)
Quarter: 2010Q4

REPORT INFORMATION
  Report Type: 
  Country: None (occurrence: None)
  Receive Date: 20101115
  Receipt Date: 20101102
  Transmission Date: 20110411
  Serious: Yes (Hospitalization)
  Sender: FDA-Public Use
  Company Number: US-ELI_LILLY_AND_COMPANY-US201007003663

PATIENT
  Sex: Female
  Weight: 62.585 kg

DRUGS (9)
  1. FORTEO [Suspect]
     Indication: OSTEOPOROSIS
     Dosage: 20 UG, DAILY (1/D)
     Route: 058
     Dates: start: 20090910, end: 20100517
  2. METHOTREXATE [Concomitant]
     Dosage: 10 MG, WEEKLY (1/W)
  3. FOLIC ACID [Concomitant]
     Dosage: 1 MG, 2/D
  4. PLAQUENIL [Concomitant]
     Dosage: 400 MG, DAILY (1/D)
  5. MEDROL [Concomitant]
     Dosage: 4 MG, 3/W
  6. LASIX [Concomitant]
     Dosage: 20 MG, EACH MORNING
  7. LISINOPRIL [Concomitant]
     Dosage: 10 MG, EACH MORNING
  8. ADVAIR DISKUS 100/50 [Concomitant]
     Dosage: UNK, 2/D
  9. ALBUTEROL [Concomitant]
     Dosage: UNK, AS NEEDED

REACTIONS (5)
  - CHRONIC OBSTRUCTIVE PULMONARY DISEASE [None]
  - CLOSTRIDIAL INFECTION [None]
  - CONFUSIONAL STATE [None]
  - SEPSIS [None]
  - THROMBOCYTOPENIA [None]
